FAERS Safety Report 6929950-9 (Version None)
Quarter: 2010Q3

REPORT INFORMATION
  Report Type: 
  Country: None (occurrence: None)
  Receive Date: 20100818
  Receipt Date: 20100810
  Transmission Date: 20110219
  Serious: Yes (Death, Other)
  Sender: FDA-Public Use
  Company Number: GB-AMGEN-QUU431352

PATIENT
  Age: 79 Year
  Sex: Female
  Weight: 62 kg

DRUGS (9)
  1. ENBREL [Suspect]
     Indication: RHEUMATOID ARTHRITIS
     Route: 058
     Dates: start: 20030224, end: 20100718
  2. CO-AMILOFRUSE [Concomitant]
     Dosage: UNKNOWN
  3. ACETAMINOPHEN AND CODEINE PHOSPHATE [Concomitant]
     Dosage: UNKNOWN
  4. RANITIDINE [Concomitant]
     Dosage: UNKNOWN
  5. FENTANYL [Concomitant]
     Dosage: UNKNOWN
  6. ORAMORPH SR [Concomitant]
     Dosage: UNKNOWN
  7. PREDNISOLONE [Concomitant]
     Dosage: UNKNOWN
  8. BISOPROLOL FUMARATE [Concomitant]
     Dosage: UNKNOWN
  9. DEXAMETHASONE [Concomitant]
     Dosage: UNKNOWN

REACTIONS (2)
  - ASTHENIA [None]
  - NEOPLASM MALIGNANT [None]
